FAERS Safety Report 4753788-4 (Version None)
Quarter: 2005Q3

REPORT INFORMATION
  Report Type: 
  Country: None (occurrence: None)
  Receive Date: 20050823
  Receipt Date: 20050722
  Transmission Date: 20060218
  Serious: No
  Sender: FDA-Public Use
  Company Number: 216008

PATIENT
  Age: 31 Year
  Sex: Female
  Weight: 48.6 kg

DRUGS (1)
  1. RAPTIVA [Suspect]
     Indication: PSORIASIS
     Dosage: 48.6G, 1/WEEK, SUBCUTANEOUS
     Route: 058
     Dates: start: 20050401

REACTIONS (3)
  - EYE DISCHARGE [None]
  - LYMPH NODE PAIN [None]
  - RHINITIS [None]
